FAERS Safety Report 4939956-7 (Version None)
Quarter: 2006Q1

REPORT INFORMATION
  Report Type: 
  Country: None (occurrence: None)
  Receive Date: 20060310
  Receipt Date: 20050310
  Transmission Date: 20060701
  Serious: Yes (Hospitalization, Disabling)
  Sender: FDA-Public Use
  Company Number: US-MERCK-0503USA02077

PATIENT
  Age: 55 Year
  Sex: Female
  Weight: 44 kg

DRUGS (6)
  1. ST JOHNS WORT [Concomitant]
     Route: 065
     Dates: start: 20010701
  2. VIOXX [Suspect]
     Indication: BURSITIS
     Route: 048
     Dates: start: 20001107, end: 20010226
  3. VIOXX [Suspect]
     Route: 048
     Dates: start: 20010201
  4. FOSAMAX [Suspect]
     Route: 048
     Dates: start: 20001101
  5. [THERAPY UNSPECIFIED] [Concomitant]
     Indication: HYPERCHOLESTEROLAEMIA
     Route: 065
     Dates: start: 20000601, end: 20040601
  6. ASPIRIN [Concomitant]
     Route: 065
     Dates: start: 20010301

REACTIONS (8)
  - ABDOMINAL PAIN UPPER [None]
  - BLADDER DISORDER [None]
  - CHRONIC OBSTRUCTIVE PULMONARY DISEASE [None]
  - EMOTIONAL DISTRESS [None]
  - MYOCARDIAL INFARCTION [None]
  - NEPHROLITHIASIS [None]
  - PEPTIC ULCER [None]
  - SKELETAL INJURY [None]
